FAERS Safety Report 24614001 (Version 1)
Quarter: 2024Q4

REPORT INFORMATION
  Report Type: Spontaneous
  Country: US (occurrence: US)
  Receive Date: 20241113
  Receipt Date: 20241113
  Transmission Date: 20250115
  Serious: No
  Sender: VERTEX
  Company Number: US-VERTEX PHARMACEUTICALS-2024-017582

PATIENT
  Sex: Male

DRUGS (1)
  1. TRIKAFTA [Suspect]
     Active Substance: ELEXACAFTOR\IVACAFTOR\TEZACAFTOR
     Indication: Cystic fibrosis
     Dosage: 100MG ELEXA/ 50 MG TEZA/ 75 MG IVA IN THE AM AND 75 MG IVA IN PM
     Route: 048

REACTIONS (3)
  - Anger [Unknown]
  - Abnormal behaviour [Unknown]
  - Aggression [Unknown]
